FAERS Safety Report 10566483 (Version 2)
Quarter: 2014Q4

REPORT INFORMATION
  Report Type: Spontaneous
  Country: BR (occurrence: BR)
  Receive Date: 20141105
  Receipt Date: 20141203
  Transmission Date: 20150529
  Serious: Yes (Death, Hospitalization, Other)
  Sender: FDA-Public Use
  Company Number: BR-ELI_LILLY_AND_COMPANY-BR201410010221

PATIENT
  Age: 77 Year
  Sex: Female
  Weight: 61 kg

DRUGS (18)
  1. GEMZAR [Suspect]
     Active Substance: GEMCITABINE HYDROCHLORIDE
     Indication: CHOLANGIOCARCINOMA
     Dosage: 1486.8 MG, CYCLICAL
     Route: 042
     Dates: start: 20140728, end: 20140728
  2. OXALIPLATIN. [Suspect]
     Active Substance: OXALIPLATIN
     Dosage: 148.68 MG, CYCLICAL
     Route: 042
     Dates: start: 20140811, end: 20140811
  3. OXALIPLATIN. [Suspect]
     Active Substance: OXALIPLATIN
     Indication: HEPATIC CANCER
     Dosage: 148.68 MG, CYCLICAL
     Route: 042
     Dates: start: 20140714, end: 20140714
  4. OXALIPLATIN. [Suspect]
     Active Substance: OXALIPLATIN
     Indication: CHOLANGIOCARCINOMA
     Dosage: 148.68 MG, CYCLICAL
     Route: 042
     Dates: start: 20140728, end: 20140728
  5. GEMOX (GEMFIBROZIL) [Suspect]
     Active Substance: GEMFIBROZIL
     Indication: CHOLANGIOCARCINOMA
     Dosage: UNK, CYCLICAL
     Route: 065
     Dates: start: 20140728, end: 20140728
  6. OMEPRAZOL                          /00661201/ [Concomitant]
     Active Substance: OMEPRAZOLE
     Indication: PRODUCT USED FOR UNKNOWN INDICATION
     Dosage: UNK, UNKNOWN
     Route: 065
  7. GEMZAR [Suspect]
     Active Substance: GEMCITABINE HYDROCHLORIDE
     Indication: HEPATIC CANCER
     Dosage: 1486.8 MG, CYCLICAL
     Route: 042
     Dates: start: 20140714, end: 20140714
  8. GEMZAR [Suspect]
     Active Substance: GEMCITABINE HYDROCHLORIDE
     Dosage: 1486.8 MG, CYCLICAL
     Route: 042
     Dates: start: 20140811, end: 20140811
  9. GEMOX (GEMFIBROZIL) [Suspect]
     Active Substance: GEMFIBROZIL
     Indication: HEPATIC CANCER
     Dosage: UNK, CYCLICAL
     Route: 065
     Dates: start: 20140714, end: 20140714
  10. SINVASTATINA [Concomitant]
     Indication: PRODUCT USED FOR UNKNOWN INDICATION
     Dosage: UNK, UNKNOWN
     Route: 065
  11. DECADRON [Concomitant]
     Active Substance: DEXAMETHASONE
     Indication: PRODUCT USED FOR UNKNOWN INDICATION
     Dosage: UNK, UNKNOWN
     Route: 065
  12. ALENIA [Concomitant]
     Active Substance: BUDESONIDE\FORMOTEROL FUMARATE
     Indication: PRODUCT USED FOR UNKNOWN INDICATION
     Dosage: UNK, UNKNOWN
     Route: 065
  13. OLCADIL [Concomitant]
     Active Substance: CLOXAZOLAM
     Indication: PRODUCT USED FOR UNKNOWN INDICATION
     Dosage: UNK, UNKNOWN
     Route: 065
  14. BEROTEC [Concomitant]
     Active Substance: FENOTEROL HYDROBROMIDE
     Indication: PRODUCT USED FOR UNKNOWN INDICATION
     Dosage: UNK, UNKNOWN
     Route: 055
  15. RANITIDINE [Concomitant]
     Active Substance: RANITIDINE\RANITIDINE HYDROCHLORIDE
     Indication: PRODUCT USED FOR UNKNOWN INDICATION
     Dosage: UNK, UNKNOWN
     Route: 065
  16. GEMOX (GEMFIBROZIL) [Suspect]
     Active Substance: GEMFIBROZIL
     Dosage: UNK, CYCLICAL
     Route: 065
     Dates: start: 20140811, end: 20140811
  17. FRONTAL [Concomitant]
     Active Substance: ALPRAZOLAM
     Indication: PRODUCT USED FOR UNKNOWN INDICATION
     Dosage: UNK, UNKNOWN
     Route: 065
  18. AMLODIPINO                         /00972401/ [Concomitant]
     Indication: PRODUCT USED FOR UNKNOWN INDICATION
     Dosage: UNK, UNKNOWN
     Route: 065

REACTIONS (11)
  - Pain [None]
  - Cellulitis [Recovered/Resolved]
  - Subileus [Not Recovered/Not Resolved]
  - Abdominal distension [None]
  - Pyrexia [Recovered/Resolved]
  - General physical health deterioration [Recovered/Resolved]
  - Diarrhoea [Recovered/Resolved]
  - Dehydration [Not Recovered/Not Resolved]
  - Electrolyte imbalance [Not Recovered/Not Resolved]
  - Oliguria [None]
  - Death [Fatal]

NARRATIVE: CASE EVENT DATE: 20140812
